FAERS Safety Report 13777747 (Version 1)
Quarter: 2017Q3

REPORT INFORMATION
  Report Type: Spontaneous
  Country: US (occurrence: US)
  Receive Date: 20170721
  Receipt Date: 20170721
  Transmission Date: 20171127
  Serious: Yes (Other)
  Sender: FDA-Public Use
  Company Number: US-AMGEN-USASP2017107564

PATIENT
  Sex: Male

DRUGS (4)
  1. NEULASTA [Suspect]
     Active Substance: PEGFILGRASTIM
     Indication: PRODUCT USED FOR UNKNOWN INDICATION
     Dosage: UNK
     Route: 065
  2. TAXOL [Concomitant]
     Active Substance: PACLITAXEL
     Indication: HEAD AND NECK CANCER
     Dosage: UNK
  3. TAXOL [Concomitant]
     Active Substance: PACLITAXEL
     Indication: BONE CANCER
  4. TAXOL [Concomitant]
     Active Substance: PACLITAXEL
     Indication: LYMPHOMA

REACTIONS (4)
  - Pyrexia [Unknown]
  - Haemoptysis [Unknown]
  - Feeling abnormal [Unknown]
  - Wrong technique in product usage process [Unknown]

NARRATIVE: CASE EVENT DATE: 20170712
